FAERS Safety Report 7426935-3 (Version None)
Quarter: 2011Q2

REPORT INFORMATION
  Report Type: 
  Country: None (occurrence: None)
  Receive Date: 20110420
  Receipt Date: 20110418
  Transmission Date: 20111010
  Serious: Yes (Hospitalization, Other)
  Sender: FDA-Public Use
  Company Number: GB-TEVA-277375ISR

PATIENT
  Age: 55 Year
  Sex: Male

DRUGS (1)
  1. LEVOTHYROXINE SODIUM [Suspect]
     Indication: HYPOTHYROIDISM
     Route: 048
     Dates: start: 20101201, end: 20110226

REACTIONS (30)
  - DRY MOUTH [None]
  - SKIN EXFOLIATION [None]
  - FATIGUE [None]
  - ABDOMINAL DISCOMFORT [None]
  - SOMNOLENCE [None]
  - INSOMNIA [None]
  - TINNITUS [None]
  - FEELING OF BODY TEMPERATURE CHANGE [None]
  - MYALGIA [None]
  - NERVOUSNESS [None]
  - RASH [None]
  - DYSPNOEA [None]
  - MALAISE [None]
  - ABNORMAL FAECES [None]
  - BLOOD PRESSURE INCREASED [None]
  - DISTURBANCE IN ATTENTION [None]
  - CHILLS [None]
  - WEIGHT INCREASED [None]
  - DARK CIRCLES UNDER EYES [None]
  - DIZZINESS [None]
  - DYSPHONIA [None]
  - MUSCULAR WEAKNESS [None]
  - DRUG INTOLERANCE [None]
  - NECK PAIN [None]
  - CIRCULATORY COLLAPSE [None]
  - CONFUSIONAL STATE [None]
  - COUGH [None]
  - ASTHENIA [None]
  - PAIN [None]
  - HYPERHIDROSIS [None]
